FAERS Safety Report 18414444 (Version 7)
Quarter: 2021Q1

REPORT INFORMATION
  Report Type: Report from Study
  Country: DE (occurrence: DE)
  Receive Date: 20201022
  Receipt Date: 20210315
  Transmission Date: 20210419
  Serious: Yes (Hospitalization, Other)
  Sender: FDA-Public Use
  Company Number: NVSC2020DE250178

PATIENT
  Sex: Female
  Weight: 58 kg

DRUGS (4)
  1. CITALOPRAM [Concomitant]
     Active Substance: CITALOPRAM HYDROBROMIDE
     Indication: DEPRESSION
     Dosage: 0.5
     Route: 048
     Dates: start: 2019
  2. NORSPAN [Concomitant]
     Active Substance: BUPRENORPHINE
     Indication: PAIN
     Dosage: ALTERNATING WEEKLY
     Route: 062
     Dates: start: 2019
  3. LETROZOLE. [Suspect]
     Active Substance: LETROZOLE
     Indication: BREAST CANCER METASTATIC
     Dosage: 2.5 MG, QD  (DAILY)
     Route: 048
     Dates: start: 20200414
  4. KISQALI [Suspect]
     Active Substance: RIBOCICLIB
     Indication: BREAST CANCER METASTATIC
     Dosage: 600 MG, QD (DAILY)
     Route: 048
     Dates: start: 20200414

REACTIONS (13)
  - Monocyte count increased [Unknown]
  - Back pain [Not Recovered/Not Resolved]
  - Blood potassium decreased [Unknown]
  - Renal failure [Recovering/Resolving]
  - Weight decreased [Not Recovered/Not Resolved]
  - Glomerular filtration rate decreased [Not Recovered/Not Resolved]
  - General physical health deterioration [Recovered/Resolved]
  - Decreased appetite [Not Recovered/Not Resolved]
  - Haemoglobin decreased [Unknown]
  - Anaemia [Recovered/Resolved]
  - Blood creatinine increased [Unknown]
  - Laboratory test abnormal [Not Recovered/Not Resolved]
  - Bone pain [Unknown]

NARRATIVE: CASE EVENT DATE: 202009
